FAERS Safety Report 5491491-6 (Version None)
Quarter: 2007Q4

REPORT INFORMATION
  Report Type: 
  Country: None (occurrence: None)
  Receive Date: 20071022
  Receipt Date: 20071016
  Transmission Date: 20080405
  Serious: Yes (Death, Life-Threatening, Hospitalization)
  Sender: FDA-Public Use
  Company Number: PHHO2007KW12585

PATIENT
  Age: 82 Year
  Sex: Male
  Weight: 79 kg

DRUGS (7)
  1. CALCIUM [Concomitant]
  2. VITAMIN D [Concomitant]
  3. ZOLEDRONIC ACID [Suspect]
     Indication: PROSTATE CANCER
     Dosage: 4 MG, EVERY 4 WEEKS
     Route: 042
     Dates: start: 20061108, end: 20070721
  4. OLFEN [Concomitant]
  5. TRAMADOL HCL [Concomitant]
  6. TAZOCIN [Concomitant]
  7. LOSEC [Concomitant]

REACTIONS (17)
  - ANAEMIA [None]
  - ASTHENIA [None]
  - BONE MARROW FAILURE [None]
  - ECCHYMOSIS [None]
  - HAEMOPTYSIS [None]
  - HORMONE LEVEL ABNORMAL [None]
  - HYPOCALCAEMIA [None]
  - LEUKOCYTOSIS [None]
  - MALIGNANT NEOPLASM PROGRESSION [None]
  - METASTASES TO BONE MARROW [None]
  - METASTATIC NEOPLASM [None]
  - PAIN [None]
  - PROSTRATION [None]
  - PYREXIA [None]
  - SEPSIS [None]
  - SINUS TACHYCARDIA [None]
  - THROMBOCYTOPENIA [None]
